FAERS Safety Report 10570392 (Version 2)
Quarter: 2014Q4

REPORT INFORMATION
  Report Type: Spontaneous
  Country: US (occurrence: None)
  Receive Date: 20141105
  Receipt Date: 20141125
  Transmission Date: 20150529
  Serious: Yes (Other)
  Sender: FDA-Public Use
  Company Number: 2014-20500

PATIENT
  Age: 73 Year
  Sex: Male

DRUGS (1)
  1. EYLEA [Suspect]
     Active Substance: AFLIBERCEPT
     Indication: AGE-RELATED MACULAR DEGENERATION
     Route: 031
     Dates: start: 20141002

REACTIONS (5)
  - Endophthalmitis [None]
  - Hypopyon [None]
  - Eye infection staphylococcal [None]
  - Vitrectomy [None]
  - Visual acuity reduced [None]

NARRATIVE: CASE EVENT DATE: 20141002
